FAERS Safety Report 5280508-X (Version None)
Quarter: 2007Q1

REPORT INFORMATION
  Report Type: 
  Country: None (occurrence: None)
  Receive Date: 20070329
  Receipt Date: 20070319
  Transmission Date: 20070707
  Serious: Yes (Other)
  Sender: FDA-Public Use
  Company Number: 2007UW04365

PATIENT
  Age: 63 Year
  Sex: Male
  Weight: 72.6 kg

DRUGS (7)
  1. SEROQUEL [Suspect]
     Indication: BIPOLAR I DISORDER
     Dosage: STARTER PACK
     Route: 048
     Dates: start: 20070307, end: 20070318
  2. SEROQUEL [Suspect]
     Indication: SCHIZOPHRENIA
     Dosage: STARTER PACK
     Route: 048
     Dates: start: 20070307, end: 20070318
  3. SEROQUEL [Suspect]
     Route: 048
     Dates: start: 20070319, end: 20070320
  4. SEROQUEL [Suspect]
     Route: 048
     Dates: start: 20070319, end: 20070320
  5. SEROQUEL [Suspect]
     Dosage: 1/2 OF 200 MG TABLET
     Route: 048
     Dates: start: 20070321
  6. SEROQUEL [Suspect]
     Dosage: 1/2 OF 200 MG TABLET
     Route: 048
     Dates: start: 20070321
  7. PROZAC [Concomitant]

REACTIONS (6)
  - ABDOMINAL PAIN [None]
  - AORTIC ANEURYSM [None]
  - BLOOD POTASSIUM DECREASED [None]
  - FATIGUE [None]
  - FEELING ABNORMAL [None]
  - SOMNOLENCE [None]
